FAERS Safety Report 25734161 (Version 1)
Quarter: 2025Q3

REPORT INFORMATION
  Report Type: Spontaneous
  Country: JP (occurrence: JP)
  Receive Date: 20250828
  Receipt Date: 20250828
  Transmission Date: 20251020
  Serious: Yes (Death)
  Sender: BOEHRINGER INGELHEIM
  Company Number: JP-NBI-2025-BI-007995

PATIENT
  Age: 73 Year
  Sex: Male

DRUGS (3)
  1. OFEV [Suspect]
     Active Substance: NINTEDANIB
     Indication: Idiopathic pulmonary fibrosis
     Dates: start: 20250114, end: 20250120
  2. OFEV [Suspect]
     Active Substance: NINTEDANIB
     Dates: start: 20250121, end: 20250616
  3. OFEV [Suspect]
     Active Substance: NINTEDANIB
     Dosage: MORNING AND EVENING.
     Dates: start: 20250617, end: 20250715

REACTIONS (10)
  - Death [Fatal]
  - Dyspnoea [Not Recovered/Not Resolved]
  - Oxygen saturation decreased [Recovered/Resolved]
  - Hypophagia [Not Recovered/Not Resolved]
  - Feeding disorder [Not Recovered/Not Resolved]
  - Diarrhoea [Not Recovered/Not Resolved]
  - Taste disorder [Not Recovered/Not Resolved]
  - Decreased appetite [Not Recovered/Not Resolved]
  - Productive cough [Not Recovered/Not Resolved]
  - Blood pressure increased [Recovered/Resolved]

NARRATIVE: CASE EVENT DATE: 20250101
